FAERS Safety Report 7743584-8 (Version None)
Quarter: 2011Q3

REPORT INFORMATION
  Report Type: 
  Country: None (occurrence: None)
  Receive Date: 20110819
  Receipt Date: 20110607
  Transmission Date: 20111222
  Serious: No
  Sender: FDA-Public Use
  Company Number: 034750

PATIENT
  Sex: Female

DRUGS (6)
  1. LAMICTAL [Concomitant]
  2. KEPPRA [Concomitant]
  3. LACOSAMIDE [Suspect]
     Indication: EPILEPSY
     Dosage: 50 MG BID; 100 MG BID; 50 MG BID; 50 MG QD
     Dates: start: 20110510, end: 20110517
  4. LACOSAMIDE [Suspect]
     Indication: EPILEPSY
     Dosage: 50 MG BID; 100 MG BID; 50 MG BID; 50 MG QD
     Dates: start: 20110201, end: 20110201
  5. LACOSAMIDE [Suspect]
     Indication: EPILEPSY
     Dosage: 50 MG BID; 100 MG BID; 50 MG BID; 50 MG QD
     Dates: start: 20110518, end: 20110524
  6. LACOSAMIDE [Suspect]
     Indication: EPILEPSY
     Dosage: 50 MG BID; 100 MG BID; 50 MG BID; 50 MG QD
     Dates: start: 20110201, end: 20110509

REACTIONS (1)
  - DIPLOPIA [None]
